FAERS Safety Report 13702555 (Version 2)
Quarter: 2017Q3

REPORT INFORMATION
  Report Type: Report from Study
  Country: FR (occurrence: FR)
  Receive Date: 20170629
  Receipt Date: 20170802
  Transmission Date: 20171127
  Serious: Yes (Death, Other)
  Sender: FDA-Public Use
  Company Number: PHHY2016FR110446

PATIENT
  Age: 81 Year
  Sex: Female

DRUGS (3)
  1. AFINITOR [Suspect]
     Active Substance: EVEROLIMUS
     Indication: BREAST CANCER
     Dosage: 10 MG, QD
     Route: 065
     Dates: start: 20151028, end: 20151101
  2. EXEMESTANE. [Suspect]
     Active Substance: EXEMESTANE
     Indication: BREAST CANCER
     Dosage: 25 MG, QD
     Route: 065
     Dates: start: 20151028, end: 20151214
  3. AFINITOR [Suspect]
     Active Substance: EVEROLIMUS
     Dosage: 5 MG, QD
     Route: 065
     Dates: start: 20151105, end: 20151109

REACTIONS (8)
  - General physical health deterioration [Fatal]
  - Metastases to meninges [Fatal]
  - Diplopia [Fatal]
  - Malignant neoplasm progression [Fatal]
  - Headache [Fatal]
  - Stomatitis [Recovered/Resolved]
  - Visual impairment [Fatal]
  - Hypothermia [Recovered/Resolved]

NARRATIVE: CASE EVENT DATE: 20151031
